FAERS Safety Report 8882854 (Version 2)
Quarter: 2012Q4

REPORT INFORMATION
  Report Type: 
  Country: US (occurrence: US)
  Receive Date: 20121105
  Receipt Date: 20121219
  Transmission Date: 20130627
  Serious: Yes (Other)
  Sender: FDA-Public Use
  Company Number: US-BAYER-2012-115507

PATIENT
  Age: 37 Year
  Sex: Female
  Weight: 81.18 kg

DRUGS (1)
  1. MIRENA [Suspect]
     Dosage: 20 mcg/24hr, CONT
     Route: 015
     Dates: start: 20120531, end: 20121018

REACTIONS (4)
  - Vaginal haemorrhage [None]
  - Abdominal pain lower [None]
  - Device expulsion [None]
  - Uterine leiomyoma [None]
